FAERS Safety Report 24129026 (Version 6)
Quarter: 2024Q4

REPORT INFORMATION
  Report Type: Spontaneous
  Country: CA (occurrence: CA)
  Receive Date: 20240723
  Receipt Date: 20241226
  Transmission Date: 20250115
  Serious: No
  Sender: PFIZER
  Company Number: CA-PFIZER INC-202400215752

PATIENT
  Age: 47 Year
  Sex: Female

DRUGS (1)
  1. ABRILADA [Suspect]
     Active Substance: ADALIMUMAB-AFZB
     Indication: Hidradenitis
     Dosage: 1 DF, 160MG WEEK 0, 80MG WEEK 2 THEN40MG Q2 WEEKS
     Route: 058
     Dates: start: 20240109

REACTIONS (4)
  - Nervous system disorder [Unknown]
  - Infection [Unknown]
  - Cellulitis [Recovered/Resolved]
  - Furuncle [Unknown]

NARRATIVE: CASE EVENT DATE: 20240101
